FAERS Safety Report 9333007 (Version 1)
Quarter: 2013Q2

REPORT INFORMATION
  Report Type: Spontaneous
  Country: US (occurrence: US)
  Receive Date: 20130606
  Receipt Date: 20130606
  Transmission Date: 20140414
  Serious: No
  Sender: FDA-Public Use
  Company Number: US-PFIZER INC-2013171412

PATIENT
  Age: 51 Year
  Sex: Male

DRUGS (6)
  1. LYRICA [Suspect]
     Dosage: 200 MG, 3X/DAY (ONE)
  2. LITHIUM CARBONATE [Concomitant]
     Dosage: UNK
  3. DIAZEM [Concomitant]
     Dosage: UNK
  4. CYMBALTA [Concomitant]
     Dosage: UNK
  5. ASPIRIN [Concomitant]
     Dosage: UNK
  6. METHADONE [Concomitant]
     Dosage: UNK

REACTIONS (1)
  - Sciatica [Unknown]
